FAERS Safety Report 8800695 (Version 2)
Quarter: 2013Q1

REPORT INFORMATION
  Report Type: Spontaneous
  Country: US (occurrence: US)
  Receive Date: 20120921
  Receipt Date: 20130326
  Transmission Date: 20140127
  Serious: Yes (Hospitalization)
  Sender: FDA-Public Use
  Company Number: US-BAYER-2012-097608

PATIENT
  Age: 43 Year
  Sex: Female

DRUGS (8)
  1. YAZ [Suspect]
  2. YASMIN [Suspect]
  3. OCELLA [Suspect]
  4. ZOLOFT [Concomitant]
  5. ZESTRIL [Concomitant]
     Dosage: UNK
     Dates: start: 200904
  6. ECOTRIN [Concomitant]
     Dosage: UNK
     Dates: start: 200904
  7. LISINOPRIL [Concomitant]
     Dosage: UNK
     Dates: start: 200904
  8. METOPROLOL [Concomitant]
     Dosage: UNK
     Dates: start: 200904

REACTIONS (2)
  - Injury [None]
  - Deep vein thrombosis [None]
